FAERS Safety Report 9520265 (Version 1)
Quarter: 2013Q3

REPORT INFORMATION
  Report Type: Spontaneous
  Country: GB (occurrence: GB)
  Receive Date: 20130912
  Receipt Date: 20130912
  Transmission Date: 20140515
  Serious: Yes (Other)
  Sender: FDA-Public Use
  Company Number: GB-WATSON-2013-16378

PATIENT
  Age: 52 Year
  Sex: Female

DRUGS (2)
  1. SERTRALINE HYDROCHLORIDE (UNKNOWN) [Suspect]
     Indication: DEPRESSION
     Dosage: 50 MG, UNK
     Route: 048
     Dates: start: 20130610, end: 20130701
  2. ZOPICLONE [Concomitant]
     Indication: ANXIETY
     Dosage: 2.75 MG, DAILY
     Route: 065
     Dates: start: 20130610, end: 20130617

REACTIONS (4)
  - Fatigue [Recovered/Resolved]
  - Gamma-glutamyltransferase increased [Recovered/Resolved]
  - Alanine aminotransferase increased [Recovered/Resolved]
  - Hepatitis [Recovered/Resolved]
